FAERS Safety Report 11767296 (Version 1)
Quarter: 2015Q4

REPORT INFORMATION
  Report Type: Report from Study
  Country: JP (occurrence: JP)
  Receive Date: 20151123
  Receipt Date: 20151123
  Transmission Date: 20160304
  Serious: Yes (Death)
  Sender: FDA-Public Use
  Company Number: JP-BAYER-2015-471704

PATIENT
  Age: 72 Year
  Sex: Male
  Weight: 64 kg

DRUGS (8)
  1. EPIRUBICIN [Concomitant]
     Active Substance: EPIRUBICIN
     Indication: HEPATOCELLULAR CARCINOMA
     Dosage: 50 MG, UNK
     Route: 013
  2. SORAFENIB [Suspect]
     Active Substance: SORAFENIB
     Indication: HEPATOCELLULAR CARCINOMA
     Dosage: DAILY DOSE 400 MG
     Route: 048
     Dates: start: 20140805, end: 20141121
  3. LIPIODOL [Concomitant]
     Active Substance: ETHIODIZED OIL
     Dosage: UNK
  4. LIPIODOL [Concomitant]
     Active Substance: ETHIODIZED OIL
     Dosage: UNK
  5. SORAFENIB [Suspect]
     Active Substance: SORAFENIB
     Indication: HEPATOCELLULAR CARCINOMA
     Dosage: 400 MG, QOD
     Route: 048
     Dates: start: 20150331, end: 20150608
  6. SORAFENIB [Suspect]
     Active Substance: SORAFENIB
     Indication: HEPATOCELLULAR CARCINOMA
     Dosage: DAILY DOSE 400 MG
     Route: 048
     Dates: start: 20150213, end: 20150227
  7. LIPIODOL [Concomitant]
     Active Substance: ETHIODIZED OIL
     Route: 013
  8. LIPIODOL [Concomitant]
     Active Substance: ETHIODIZED OIL
     Dosage: UNK

REACTIONS (1)
  - Hepatocellular carcinoma [Fatal]

NARRATIVE: CASE EVENT DATE: 20151108
